FAERS Safety Report 4775650-3 (Version None)
Quarter: 2005Q3

REPORT INFORMATION
  Report Type: 
  Country: None (occurrence: None)
  Receive Date: 20050920
  Receipt Date: 20050920
  Transmission Date: 20060218
  Serious: Yes (Hospitalization)
  Sender: FDA-Public Use
  Company Number: None

PATIENT
  Age: 37 Year
  Sex: Female
  Weight: 78.9259 kg

DRUGS (25)
  1. XOLAIR [Suspect]
     Indication: ASTHMA
     Dosage: 150 MG SC Q 4 WEEKS
     Route: 058
     Dates: start: 20050511
  2. XOLAIR [Suspect]
     Indication: ASTHMA
     Dosage: 150 MG SC Q 4 WEEKS
     Route: 058
     Dates: start: 20050607
  3. XOLAIR [Suspect]
     Indication: ASTHMA
     Dosage: 150 MG SC Q 4 WEEKS
     Route: 058
     Dates: start: 20050705
  4. ALBUTEROL [Concomitant]
  5. ADVAIR DISCUS [Concomitant]
  6. DITROPAN XL [Concomitant]
  7. ELMIRON [Concomitant]
  8. HYDROCHLOROTHIAZIDE [Concomitant]
  9. HYDROXYZINE [Concomitant]
  10. HYOSCYAMINE [Concomitant]
  11. OXYCODONE HCL [Concomitant]
  12. ACETAMINOPHEN [Concomitant]
  13. PREDNISONE [Concomitant]
  14. PREVACID [Concomitant]
  15. PROMETHAZINE [Concomitant]
  16. SINGULAIR [Concomitant]
  17. SOMA [Concomitant]
  18. TIZANIDINE HCL [Concomitant]
  19. ULTRACET [Concomitant]
  20. VERAPAMIL [Concomitant]
  21. ZELNORM [Concomitant]
  22. ZOLMIG [Concomitant]
  23. TYLENOL ARTHRITIS [Concomitant]
  24. PERCOGESIC [Concomitant]
  25. QUININE SULFATE [Concomitant]

REACTIONS (6)
  - DYSPNOEA [None]
  - INFUSION RELATED REACTION [None]
  - PALLOR [None]
  - RESPIRATORY DISTRESS [None]
  - THROAT TIGHTNESS [None]
  - WHEEZING [None]
